FAERS Safety Report 10535825 (Version 1)
Quarter: 2014Q4

REPORT INFORMATION
  Report Type: Spontaneous
  Country: US (occurrence: US)
  Receive Date: 20141022
  Receipt Date: 20141022
  Transmission Date: 20150529
  Serious: No
  Sender: FDA-Public Use
  Company Number: US-RECKITT BENCKISER PHARMACEUTICAL, INC-RB-60093-2013

PATIENT

DRUGS (1)
  1. SUBOXONE [Suspect]
     Active Substance: BUPRENORPHINE HYDROCHLORIDE\NALOXONE HYDROCHLORIDE
     Indication: DRUG DEPENDENCE
     Dosage: SUBOXONE FILM; TAKING 2-4 MG DAILY (PRESCRIBED 24 MG DAILY)
     Route: 065

REACTIONS (12)
  - Drug withdrawal syndrome [Unknown]
  - Substance abuse [Recovered/Resolved]
  - Mydriasis [Unknown]
  - Feeling abnormal [Unknown]
  - Fatigue [Unknown]
  - Dysarthria [Unknown]
  - Underdose [Recovered/Resolved]
  - Sexual dysfunction [Unknown]
  - Drug diversion [Recovered/Resolved]
  - Limb discomfort [Unknown]
  - Insomnia [Unknown]
  - Pain in extremity [Not Recovered/Not Resolved]
